FAERS Safety Report 6034100-X (Version None)
Quarter: 2009Q1

REPORT INFORMATION
  Report Type: 
  Country: None (occurrence: None)
  Receive Date: 20090108
  Receipt Date: 20081228
  Transmission Date: 20090719
  Serious: Yes (Other)
  Sender: FDA-Public Use
  Company Number: CHPA2008US23485

PATIENT
  Age: 48 Year
  Sex: Male

DRUGS (1)
  1. EXCEDRIN (MIGRAINE) [Suspect]
     Indication: ANALGESIA
     Dosage: UNK, QD, ORAL
     Route: 048

REACTIONS (1)
  - ROTATOR CUFF REPAIR [None]
